FAERS Safety Report 19155995 (Version 5)
Quarter: 2021Q3

REPORT INFORMATION
  Report Type: Spontaneous
  Country: US (occurrence: US)
  Receive Date: 20210420
  Receipt Date: 20210713
  Transmission Date: 20211014
  Serious: No
  Sender: FDA-Public Use
  Company Number: US-JNJFOC-20210411493

PATIENT
  Age: 72 Year
  Sex: Female

DRUGS (5)
  1. LISINOPRIL. [Concomitant]
     Active Substance: LISINOPRIL
     Indication: DIABETES MELLITUS
     Dosage: CONTINUING FOR 20 YEARS
     Route: 065
  2. METFORMIN [Concomitant]
     Active Substance: METFORMIN HYDROCHLORIDE
     Indication: DIABETES MELLITUS
     Dosage: CONTINUING FOR 20 YEARS
     Route: 065
  3. PEPCID COMPLETE [Suspect]
     Active Substance: CALCIUM CARBONATE\FAMOTIDINE\MAGNESIUM HYDROXIDE
     Indication: ABDOMINAL DISCOMFORT
     Dosage: ONE UP TO 2 TIMES DAILY AS NEEDED FAMOTIDINE DOSAGE 10MG
     Route: 048
     Dates: start: 20210322
  4. VITAMINS WITH MINERALS [Concomitant]
     Active Substance: MINERALS\VITAMINS
  5. CBD OIL [Concomitant]
     Active Substance: CANNABIDIOL\HERBALS
     Dosage: 1/2 DOSE AT BEDTIME

REACTIONS (7)
  - Salivary hypersecretion [Recovered/Resolved]
  - Throat irritation [Recovered/Resolved]
  - Dyspepsia [Unknown]
  - Reaction to excipient [Recovered/Resolved]
  - Product label issue [Unknown]
  - Dry throat [Recovered/Resolved]
  - Productive cough [Unknown]

NARRATIVE: CASE EVENT DATE: 2021
